FAERS Safety Report 4638621-3 (Version None)
Quarter: 2005Q2

REPORT INFORMATION
  Report Type: 
  Country: None (occurrence: None)
  Receive Date: 20050415
  Receipt Date: 20050415
  Transmission Date: 20051028
  Serious: Yes (Other)
  Sender: FDA-Public Use
  Company Number: None

PATIENT
  Age: 22 Month
  Sex: Female
  Weight: 13.1543 kg

DRUGS (1)
  1. KENALOG [Suspect]
     Dosage: 30MG RIGHT BUTTOCK

REACTIONS (1)
  - INJECTION SITE ATROPHY [None]
